FAERS Safety Report 22634176 (Version 1)
Quarter: 2023Q2

REPORT INFORMATION
  Report Type: Spontaneous
  Country: US (occurrence: US)
  Receive Date: 20230623
  Receipt Date: 20230623
  Transmission Date: 20230721
  Serious: Yes (Hospitalization)
  Sender: FDA-Public Use
  Company Number: US-MYLANLABS-2023M1065676

PATIENT
  Sex: Male

DRUGS (5)
  1. FUROSEMIDE [Suspect]
     Active Substance: FUROSEMIDE
     Indication: Hypercalcaemia
     Dosage: 1 MILLIGRAM/KILOGRAM, BID, STARTED ON DOL 1
     Route: 042
  2. FUROSEMIDE [Suspect]
     Active Substance: FUROSEMIDE
     Dosage: 1 MILLIGRAM/KILOGRAM, Q8H, DOSAGE INCREASED ON DOL 4
     Route: 042
  3. CALCITONIN SALMON [Suspect]
     Active Substance: CALCITONIN SALMON
     Indication: Hypercalcaemia
     Dosage: UNK, STARTED ON DOL 1; 4 UNITS/KG/6H
     Route: 058
  4. CALCITONIN SALMON [Suspect]
     Active Substance: CALCITONIN SALMON
     Dosage: DOSAGE INCREASED ON DOL 2; 6 UNITS/KG/6H
     Route: 058
  5. CALCITONIN SALMON [Suspect]
     Active Substance: CALCITONIN SALMON
     Dosage: UNK, DOSAGE INCREASED ON DOL 3; 8 UNITS/KG/6H
     Route: 058

REACTIONS (2)
  - Drug ineffective [Unknown]
  - Off label use [Unknown]
